FAERS Safety Report 5436721-1 (Version None)
Quarter: 2007Q3

REPORT INFORMATION
  Report Type: 
  Country: None (occurrence: None)
  Receive Date: 20070831
  Receipt Date: 20070827
  Transmission Date: 20080115
  Serious: Yes (Other)
  Sender: FDA-Public Use
  Company Number: US-JNJFOC-20070804432

PATIENT
  Age: 25 Year
  Sex: Female
  Weight: 61.24 kg

DRUGS (5)
  1. MONISTAT 1 COMBINATION PACK [Suspect]
     Route: 067
  2. MONISTAT 1 COMBINATION PACK [Suspect]
     Indication: FUNGAL INFECTION
     Route: 067
  3. MONISTAT 1 COMBINATION PACK [Suspect]
     Route: 061
  4. MONISTAT 1 COMBINATION PACK [Suspect]
     Route: 061
  5. VALTREX [Concomitant]
     Route: 065

REACTIONS (3)
  - MENORRHAGIA [None]
  - VAGINAL EXFOLIATION [None]
  - VULVOVAGINAL BURNING SENSATION [None]
